FAERS Safety Report 6167591-4 (Version None)
Quarter: 2009Q2

REPORT INFORMATION
  Report Type: 
  Country: None (occurrence: None)
  Receive Date: 20090424
  Receipt Date: 20090409
  Transmission Date: 20091009
  Serious: Yes (Life-Threatening)
  Sender: FDA-Public Use
  Company Number: JP-EISAI INC.-E2090-00686-SPO-JP

PATIENT
  Sex: Male

DRUGS (6)
  1. EXCEGRAN [Suspect]
     Indication: EPILEPSY
     Route: 048
     Dates: start: 20090201, end: 20090302
  2. DEPAKENE [Suspect]
     Indication: EPILEPSY
     Route: 048
     Dates: end: 20090127
  3. LAMICTAL [Suspect]
     Indication: EPILEPSY
     Route: 048
     Dates: start: 20090104, end: 20090126
  4. MYSTAN [Suspect]
     Indication: EPILEPSY
     Route: 048
     Dates: start: 20080101, end: 20090127
  5. TEGRETOL [Concomitant]
     Indication: EPILEPSY
     Route: 048
     Dates: start: 20080101, end: 20090127
  6. RIVOTRIL [Concomitant]
     Indication: EPILEPSY
     Route: 048
     Dates: start: 20080101, end: 20090127

REACTIONS (1)
  - TOXIC EPIDERMAL NECROLYSIS [None]
